FAERS Safety Report 8449807-4 (Version None)
Quarter: 2012Q2

REPORT INFORMATION
  Report Type: 
  Country: None (occurrence: None)
  Receive Date: 20120620
  Receipt Date: 20110511
  Transmission Date: 20120825
  Serious: No
  Sender: FDA-Public Use
  Company Number: US-TEVA-2011002327

PATIENT
  Sex: Female
  Weight: 56.75 kg

DRUGS (4)
  1. DILAUDID [Concomitant]
  2. DURAGESIC-100 [Concomitant]
  3. FENTORA [Suspect]
     Indication: SYSTEMIC LUPUS ERYTHEMATOSUS
     Route: 002
     Dates: start: 20080101
  4. EXALGO [Concomitant]
     Dosage: 32 MILLIGRAM;

REACTIONS (2)
  - PAIN [None]
  - DRUG INEFFECTIVE FOR UNAPPROVED INDICATION [None]
